FAERS Safety Report 11185377 (Version 1)
Quarter: 2015Q2

REPORT INFORMATION
  Report Type: Spontaneous
  Country: US (occurrence: US)
  Receive Date: 20150612
  Receipt Date: 20150612
  Transmission Date: 20150821
  Serious: No
  Sender: FDA-Public Use
  Company Number: US-HORIZON-RAV-0028-2015

PATIENT
  Age: 43 Year
  Sex: Female

DRUGS (1)
  1. RAVICTI [Suspect]
     Active Substance: GLYCEROL PHENYLBUTYRATE
     Indication: UREA CYCLE ENZYME DEFICIENCY
     Dosage: REDUCED TO 1.5 ML THEN INCREASED TO 2 ML AND THEN BACK TO 3 ML THREE TIMES DAILY

REACTIONS (4)
  - Urine odour abnormal [Recovered/Resolved]
  - Ammonia increased [Recovered/Resolved]
  - Headache [Recovered/Resolved]
  - Faeces soft [Recovered/Resolved]
